FAERS Safety Report 6974428-X (Version None)
Quarter: 2010Q3

REPORT INFORMATION
  Report Type: 
  Country: None (occurrence: None)
  Receive Date: 20100909
  Receipt Date: 20080602
  Transmission Date: 20110219
  Serious: No
  Sender: FDA-Public Use
  Company Number: US-WYE-H04366108

PATIENT
  Age: 72 Year
  Sex: Female
  Weight: 62.2 kg

DRUGS (2)
  1. PROTONIX [Suspect]
     Indication: GASTROOESOPHAGEAL REFLUX DISEASE
     Route: 048
     Dates: start: 20040101, end: 20080501
  2. CENTRUM SILVER [Concomitant]

REACTIONS (1)
  - COELIAC DISEASE [None]
